FAERS Safety Report 23918540 (Version 1)
Quarter: 2024Q2

REPORT INFORMATION
  Report Type: Report from Study
  Country: DE (occurrence: DE)
  Receive Date: 20240530
  Receipt Date: 20240530
  Transmission Date: 20240716
  Serious: Yes (Death, Hospitalization, Other)
  Sender: FDA-Public Use
  Company Number: DE-SA-SAC20230519001177

PATIENT
  Age: 83 Year
  Sex: Female
  Weight: 74 kg

DRUGS (49)
  1. CARFILZOMIB [Suspect]
     Active Substance: CARFILZOMIB
     Indication: Plasma cell myeloma refractory
     Dosage: 34 MILLIGRAM, 2 TIMES 1,2
     Route: 042
     Dates: start: 20230426, end: 20230427
  2. CARFILZOMIB [Suspect]
     Active Substance: CARFILZOMIB
     Dosage: 96 MILLIGRAM  4 TIMES 8,9,15,16
     Route: 042
     Dates: start: 20230503, end: 20230511
  3. CARFILZOMIB [Suspect]
     Active Substance: CARFILZOMIB
     Dosage: 96 MILLIGRAM  (6 TIMES 1,2,8,9,15,16)
     Route: 042
     Dates: start: 20230524, end: 20230608
  4. CARFILZOMIB [Suspect]
     Active Substance: CARFILZOMIB
     Dosage: 96 MILLIGRAM (6 TIMES 1,2,8,9,15,16)
     Route: 042
     Dates: start: 20230621, end: 20230706
  5. CARFILZOMIB [Suspect]
     Active Substance: CARFILZOMIB
     Dosage: 96 MILLIGRAM (6 TIMES 1,2,8,9,15,16)
     Route: 042
     Dates: start: 20230719, end: 20230803
  6. CARFILZOMIB [Suspect]
     Active Substance: CARFILZOMIB
     Dosage: 96 MILLIGRAM (6 TIMES 1,2,8,9,15,16)
     Route: 042
     Dates: start: 20230816, end: 20230831
  7. CARFILZOMIB [Suspect]
     Active Substance: CARFILZOMIB
     Dosage: 96 MILLIGRAM (6 TIMES 1,2,8,9,15,16)
     Route: 042
     Dates: start: 20230913, end: 20230928
  8. CARFILZOMIB [Suspect]
     Active Substance: CARFILZOMIB
     Dosage: 96 MILLIGRAM  TIMES 1,2,8,9
     Route: 042
     Dates: start: 20231011, end: 20231019
  9. CARFILZOMIB [Suspect]
     Active Substance: CARFILZOMIB
     Dosage: 96 MILLIGRAM 6 TIMES 1,2,8,9,15,16
     Route: 042
     Dates: start: 20231108, end: 20231123
  10. CARFILZOMIB [Suspect]
     Active Substance: CARFILZOMIB
     Dosage: 96 MILLIGRAM 4 TIMES 1,2,8,9
     Route: 042
     Dates: start: 20231206, end: 20231215
  11. CARFILZOMIB [Suspect]
     Active Substance: CARFILZOMIB
     Dosage: 96 MILLIGRAM, Q4H ( 6 TIMES A DAY)
     Route: 042
     Dates: start: 20240103, end: 20240118
  12. CARFILZOMIB [Suspect]
     Active Substance: CARFILZOMIB
     Dosage: 96 MG, ( 6 TIMES A DAY)
     Route: 042
     Dates: start: 20240131, end: 20240206
  13. CARFILZOMIB [Suspect]
     Active Substance: CARFILZOMIB
     Dosage: 96 MILLIGRAM, Q4H ( 6 TIMES A DAY)
     Route: 042
     Dates: start: 20240214, end: 20240215
  14. CARFILZOMIB [Suspect]
     Active Substance: CARFILZOMIB
     Dosage: 96 MILLIGRAM, Q4H ( 6 TIMES A DAY)
     Route: 042
     Dates: start: 20240228
  15. DEXAMETHASONE [Suspect]
     Active Substance: DEXAMETHASONE
     Indication: Plasma cell myeloma refractory
     Dosage: 20 MILLIGRAM, 6 TIMES
     Route: 065
     Dates: start: 20230426, end: 20230511
  16. DEXAMETHASONE [Suspect]
     Active Substance: DEXAMETHASONE
     Dosage: 20 MILLIGRAM (6 TIMES 1, 2, 8, 9, 15,16 )
     Route: 065
     Dates: start: 20230524, end: 20230608
  17. DEXAMETHASONE [Suspect]
     Active Substance: DEXAMETHASONE
     Dosage: 20 MILLIGRAM, 8 TIMES 1, 2, 8, 9, 15,16, 22, 23
     Route: 065
     Dates: start: 20230621, end: 20230713
  18. DEXAMETHASONE [Suspect]
     Active Substance: DEXAMETHASONE
     Dosage: 20 MILLIGRAM, 8 TIMES 1, 2, 8, 9, 15,16, 22, 23
     Route: 065
     Dates: start: 20230719, end: 20230810
  19. DEXAMETHASONE [Suspect]
     Active Substance: DEXAMETHASONE
     Dosage: 20 MILLIGRAM (6 TIMES 1, 2, 8, 9, 15,16 )
     Route: 065
     Dates: start: 20230816, end: 20230831
  20. DEXAMETHASONE [Suspect]
     Active Substance: DEXAMETHASONE
     Dosage: 8 MILLIGRAM (6 TIMES 1, 2, 8, 9, 15,16 )
     Route: 065
     Dates: start: 20230913, end: 20230928
  21. DEXAMETHASONE [Suspect]
     Active Substance: DEXAMETHASONE
     Dosage: 8 MILLIGRAM  (4 TIMES 1,2,8,9)
     Route: 065
     Dates: start: 20231011, end: 20231019
  22. DEXAMETHASONE [Suspect]
     Active Substance: DEXAMETHASONE
     Dosage: 8 MILLIGRAM 6TIMES 1,2,8,9,15,16
     Route: 065
     Dates: start: 20231108, end: 20231123
  23. DEXAMETHASONE [Suspect]
     Active Substance: DEXAMETHASONE
     Dosage: 8 MILLIGRAM 6TIMES 1,2,8,9
     Route: 065
     Dates: start: 20231206, end: 20231215
  24. DEXAMETHASONE [Suspect]
     Active Substance: DEXAMETHASONE
     Dosage: 8 MILLIGRAM, Q4H (6 TIMES A DAY)
     Route: 065
     Dates: start: 20240103, end: 20240118
  25. DEXAMETHASONE [Suspect]
     Active Substance: DEXAMETHASONE
     Dosage: 8 MILLIGRAM, (6 TIMES A DAY)
     Route: 065
     Dates: start: 20240131, end: 20240206
  26. DEXAMETHASONE [Suspect]
     Active Substance: DEXAMETHASONE
     Dosage: 8 MILLIGRAM, (8 TIMES DAY 1,2,8,9,15,16,22,23)
     Route: 065
     Dates: start: 20240214, end: 20240215
  27. DEXAMETHASONE [Suspect]
     Active Substance: DEXAMETHASONE
     Dosage: 8 MILLIGRAM, (8 TIMES DAY 1,2,8,9,15,16,22,23)
     Route: 065
     Dates: start: 20240228, end: 20240314
  28. ISATUXIMAB [Suspect]
     Active Substance: ISATUXIMAB
     Indication: Plasma cell myeloma refractory
     Dosage: 690 MILLIGRAM, QWK, 4 TIMES 1,8,15,22
     Route: 065
     Dates: start: 20230426, end: 20230517
  29. ISATUXIMAB [Suspect]
     Active Substance: ISATUXIMAB
     Dosage: 690 MILLIGRAM, QWK (690 MG, QW)
     Route: 065
     Dates: start: 20230524, end: 20230607
  30. ISATUXIMAB [Suspect]
     Active Substance: ISATUXIMAB
     Dosage: 1380 MILLIGRAM, QWK (690 MG, BIW)
     Route: 065
     Dates: start: 20230621, end: 20230705
  31. ISATUXIMAB [Suspect]
     Active Substance: ISATUXIMAB
     Dosage: 1380 MILLIGRAM, QWK (690 MG, BIW)
     Route: 065
     Dates: start: 20230719, end: 20230802
  32. ISATUXIMAB [Suspect]
     Active Substance: ISATUXIMAB
     Dosage: 1380 MILLIGRAM, QWK (690 MG, BIW)
     Route: 065
     Dates: start: 20230816, end: 20230830
  33. ISATUXIMAB [Suspect]
     Active Substance: ISATUXIMAB
     Dosage: 1380 MILLIGRAM, QWK (690 MG, BIW)
     Route: 065
     Dates: start: 20230913, end: 20230927
  34. ISATUXIMAB [Suspect]
     Active Substance: ISATUXIMAB
     Dosage: 1380 MILLIGRAM, QWK (690 MG, BIW)
     Route: 065
     Dates: start: 20231011, end: 20231011
  35. ISATUXIMAB [Suspect]
     Active Substance: ISATUXIMAB
     Dosage: 1380 MILLIGRAM, QWK (690 MG, BIW)
     Route: 065
     Dates: start: 20231108, end: 20231122
  36. ISATUXIMAB [Suspect]
     Active Substance: ISATUXIMAB
     Dosage: 1380 MILLIGRAM, QWK (690 MG, BIW )
     Route: 065
     Dates: start: 20231206, end: 20231206
  37. ISATUXIMAB [Suspect]
     Active Substance: ISATUXIMAB
     Dosage: 1380 MILLIGRAM, QWK (690 MG, BIW )
     Route: 065
     Dates: start: 20240103, end: 20240117
  38. ISATUXIMAB [Suspect]
     Active Substance: ISATUXIMAB
     Dosage: 1380 MILLIGRAM, QWK (690 MG, BIW )
     Route: 065
     Dates: start: 20240131, end: 20240206
  39. ISATUXIMAB [Suspect]
     Active Substance: ISATUXIMAB
     Dosage: 1380 MILLIGRAM, QWK (690 MG, BIW )
     Route: 065
     Dates: start: 20240214, end: 20240215
  40. ISATUXIMAB [Suspect]
     Active Substance: ISATUXIMAB
     Dosage: 1380 MILLIGRAM, QWK (690 MG, BIW )
     Route: 065
     Dates: start: 20240228, end: 20240313
  41. LYRICA [Concomitant]
     Active Substance: PREGABALIN
     Indication: Polyneuropathy
     Dosage: UNK
     Dates: start: 201310
  42. PANTOPRAZOLE [Concomitant]
     Active Substance: PANTOPRAZOLE
     Dosage: UNK
     Dates: start: 20141120
  43. MONTELUKAST [Concomitant]
     Active Substance: MONTELUKAST SODIUM
     Indication: Prophylaxis
     Dosage: UNK
     Dates: start: 20230426
  44. AREDIA [Concomitant]
     Active Substance: PAMIDRONATE DISODIUM
     Indication: Supportive care
     Dosage: UNK
     Dates: start: 20130926
  45. CLEMASTINE FUMARATE [Concomitant]
     Active Substance: CLEMASTINE FUMARATE
     Indication: Prophylaxis
     Dosage: UNK
     Dates: start: 20230426
  46. OXYCODONE [Concomitant]
     Active Substance: OXYCODONE\OXYCODONE HYDROCHLORIDE
     Indication: Polyneuropathy
     Dosage: UNK
     Dates: start: 2013
  47. DEXTROSE [Concomitant]
     Active Substance: DEXTROSE\DEXTROSE MONOHYDRATE
     Dosage: UNK
     Dates: start: 20230426
  48. MOVICOL [Concomitant]
     Active Substance: POLYETHYLENE GLYCOL 3350\POTASSIUM CHLORIDE\SODIUM BICARBONATE\SODIUM CHLORIDE
     Indication: Constipation
     Dosage: UNK
     Dates: start: 20230831
  49. PREGABALIN [Concomitant]
     Active Substance: PREGABALIN
     Dosage: UNK
     Route: 065
     Dates: start: 20230906

REACTIONS (16)
  - Blood glucose increased [Fatal]
  - Anaemia [Fatal]
  - Hypertension [Recovered/Resolved]
  - Headache [Recovered/Resolved]
  - Thrombocytopenia [Recovered/Resolved]
  - Thrombocytopenia [Recovered/Resolved]
  - Type 2 diabetes mellitus [Recovered/Resolved]
  - Infusion related reaction [Recovered/Resolved]
  - Anaemia [Recovered/Resolved]
  - Epistaxis [Recovered/Resolved]
  - Abdominal pain upper [Recovered/Resolved]
  - Headache [Recovered/Resolved]
  - Abdominal pain [Recovered/Resolved]
  - Nausea [Recovered/Resolved]
  - Diarrhoea [Recovered/Resolved]
  - Vomiting [Recovered/Resolved]

NARRATIVE: CASE EVENT DATE: 20230426
